FAERS Safety Report 5634423-X (Version None)
Quarter: 2008Q1

REPORT INFORMATION
  Report Type: 
  Country: None (occurrence: None)
  Receive Date: 20080131
  Receipt Date: 20061227
  Transmission Date: 20080703
  Serious: Yes (Hospitalization)
  Sender: FDA-Public Use
  Company Number: 147767USA

PATIENT
  Sex: Female
  Weight: 76.2043 kg

DRUGS (7)
  1. COPAXONE [Suspect]
     Indication: MULTIPLE SCLEROSIS
     Dosage: (20 MG),SUBCUTANEOUS
     Route: 058
     Dates: start: 20060525, end: 20060903
  2. ESCITALOPRAM OXALATE [Concomitant]
  3. MODAFINIL [Concomitant]
  4. CETRIZINE HYDROCHLORIDE [Concomitant]
  5. PREGABALIN [Concomitant]
  6. MOMETASONE FUROATE [Concomitant]
  7. NUVARING [Concomitant]

REACTIONS (1)
  - ANAPHYLACTIC REACTION [None]
